FAERS Safety Report 7478672-7 (Version None)
Quarter: 2011Q2

REPORT INFORMATION
  Report Type: 
  Country: None (occurrence: None)
  Receive Date: 20110513
  Receipt Date: 20110503
  Transmission Date: 20111010
  Serious: Yes (Other)
  Sender: FDA-Public Use
  Company Number: IT-CELGENEUS-083-50794-11050314

PATIENT
  Age: 59 Year

DRUGS (1)
  1. VIDAZA [Suspect]
     Route: 065
     Dates: end: 20100920

REACTIONS (6)
  - LIVER DISORDER [None]
  - RENAL FAILURE [None]
  - RESPIRATORY DISORDER [None]
  - CARDIOVASCULAR DISORDER [None]
  - NEUTROPENIA [None]
  - ANAEMIA [None]
